FAERS Safety Report 5712107-7 (Version None)
Quarter: 2008Q2

REPORT INFORMATION
  Report Type: 
  Country: None (occurrence: None)
  Receive Date: 20080417
  Receipt Date: 20080402
  Transmission Date: 20081010
  Serious: Yes (Congenital Anomaly)
  Sender: FDA-Public Use
  Company Number: 2008-175022-NL

PATIENT
  Sex: Male

DRUGS (7)
  1. FOLLITROPIN BETA [Suspect]
     Indication: ASSISTED FERTILISATION
     Dosage: 150 IU/100 IU, TRANSPLACENTAL
     Route: 064
  2. FOLLITROPIN BETA [Suspect]
     Indication: ASSISTED FERTILISATION
     Dosage: 150 IU/100 IU, TRANSPLACENTAL
     Route: 064
  3. CHORIONIC GONADOTROPIN [Suspect]
     Indication: ASSISTED FERTILISATION
     Dosage: 10000 IU, TRANSPLACENTAL
     Route: 064
  4. PROGESTERONE [Suspect]
     Indication: ASSISTED FERTILISATION
     Dosage: 400 MG BID, TRANSPLACENTAL
     Route: 064
  5. PROPOFOL [Suspect]
     Indication: SEDATION
     Dosage: TRANSPLACENTAL
     Route: 064
  6. LEUPROLIDE ACETATE [Suspect]
     Indication: ASSISTED FERTILISATION
     Dosage: TRANSPLACENTAL
     Route: 064
     Dates: start: 20000601
  7. ALFENTANIL HYDROCHLORIDE [Suspect]
     Indication: SEDATION
     Dosage: TRANSPLACENTAL
     Route: 064

REACTIONS (6)
  - ABORTION INDUCED [None]
  - DRUG EXPOSURE DURING PREGNANCY [None]
  - HAEMORRHAGE [None]
  - RETAINED PRODUCTS OF CONCEPTION [None]
  - SEX CHROMOSOME ABNORMALITY [None]
  - Y-LINKED CHROMOSOMAL DISORDER [None]
